FAERS Safety Report 10245886 (Version 1)
Quarter: 2014Q2

REPORT INFORMATION
  Report Type: Spontaneous
  Country: US (occurrence: US)
  Receive Date: 20140619
  Receipt Date: 20140619
  Transmission Date: 20141212
  Serious: No
  Sender: FDA-Public Use
  Company Number: US-BIOGENIDEC-2014BI056890

PATIENT
  Age: 50 Year
  Sex: Female

DRUGS (12)
  1. TECFIDERA [Suspect]
     Indication: MULTIPLE SCLEROSIS
     Route: 048
  2. ZANAFLEX [Concomitant]
  3. VITAMIN D [Concomitant]
  4. TIZANIDINE HCL [Concomitant]
  5. REVATI [Concomitant]
  6. POTASSIUM CHLORIDE [Concomitant]
  7. OXYBUTYNIN CHLORIDE [Concomitant]
  8. NYSTATIN [Concomitant]
  9. NORVASC [Concomitant]
  10. FOSAMAX [Concomitant]
  11. DILTIAZEM HCL CR [Concomitant]
  12. COPAXONE [Concomitant]

REACTIONS (2)
  - Adverse event [Unknown]
  - Urinary tract infection [Unknown]
